FAERS Safety Report 16015428 (Version 1)
Quarter: 2019Q1

REPORT INFORMATION
  Report Type: Spontaneous
  Country: US (occurrence: US)
  Receive Date: 20190228
  Receipt Date: 20190228
  Transmission Date: 20190418
  Serious: No
  Sender: FDA-Public Use
  Company Number: US-BIOGEN-2019BI00701154

PATIENT
  Age: 63 Year
  Sex: Female

DRUGS (1)
  1. TYSABRI [Suspect]
     Active Substance: NATALIZUMAB
     Indication: MULTIPLE SCLEROSIS
     Dosage: INJECT 300MG (15ML) INTRAVENOUSLY EVERY 28 DAYS
     Route: 042
     Dates: start: 20170828

REACTIONS (6)
  - Fall [Recovered/Resolved]
  - Urinary retention [Unknown]
  - Ligament sprain [Unknown]
  - Peroneal nerve palsy [Unknown]
  - Musculoskeletal pain [Unknown]
  - Cystitis [Not Recovered/Not Resolved]

NARRATIVE: CASE EVENT DATE: 2018
